FAERS Safety Report 7176649-2 (Version None)
Quarter: 2010Q4

REPORT INFORMATION
  Report Type: 
  Country: None (occurrence: None)
  Receive Date: 20101220
  Receipt Date: 20101207
  Transmission Date: 20110411
  Serious: Yes (Other)
  Sender: FDA-Public Use
  Company Number: PR-JNJFOC-20101203565

PATIENT
  Sex: Male

DRUGS (2)
  1. CONCERTA [Suspect]
     Indication: ILL-DEFINED DISORDER
     Route: 048
  2. ZOLOFT [Suspect]
     Indication: ILL-DEFINED DISORDER
     Route: 065

REACTIONS (1)
  - DYSTONIA [None]
